FAERS Safety Report 8442926 (Version 3)
Quarter: 2013Q1

REPORT INFORMATION
  Report Type: Spontaneous
  Country: DK (occurrence: JP)
  Receive Date: 20120306
  Receipt Date: 20130306
  Transmission Date: 20140127
  Serious: Yes (Death, Other)
  Sender: FDA-Public Use
  Company Number: JP-FRI-1000028810

PATIENT
  Age: 79 Year
  Sex: Male
  Weight: 57 kg

DRUGS (7)
  1. LEXAPRO [Suspect]
     Indication: DEPRESSION
     Dosage: 10 MG
     Route: 048
     Dates: start: 20120110, end: 20120209
  2. KEISHI-KA-SHAKUYAKU-TO [Suspect]
     Route: 048
     Dates: start: 20120110, end: 20120209
  3. GANATON [Concomitant]
     Route: 048
  4. MYSLEE [Concomitant]
     Route: 048
  5. YODEL-S [Concomitant]
     Route: 048
  6. CELECOX [Concomitant]
     Dosage: 200 MG
     Route: 048
     Dates: end: 20111217
  7. TAKEPRON [Concomitant]
     Dosage: 30 MG
     Route: 048
     Dates: end: 20111213

REACTIONS (3)
  - Interstitial lung disease [Fatal]
  - Pneumothorax [Fatal]
  - Pneumonia aspiration [Recovering/Resolving]
